FAERS Safety Report 7319547-3 (Version None)
Quarter: 2011Q1

REPORT INFORMATION
  Report Type: 
  Country: None (occurrence: None)
  Receive Date: 20110228
  Receipt Date: 20100506
  Transmission Date: 20110831
  Serious: No
  Sender: FDA-Public Use
  Company Number: A0859888A

PATIENT
  Sex: Female

DRUGS (2)
  1. WELLBUTRIN [Concomitant]
     Dosage: 150MG TWICE PER DAY
     Dates: start: 20080901
  2. LAMICTAL [Suspect]
     Indication: DEPRESSION
     Dosage: 200MG UNKNOWN
     Route: 065
     Dates: start: 20100301

REACTIONS (3)
  - CYSTITIS [None]
  - URINARY TRACT INFECTION [None]
  - PAIN [None]
